FAERS Safety Report 9796080 (Version 1)
Quarter: 2014Q1

REPORT INFORMATION
  Report Type: Spontaneous
  Country: FR (occurrence: FR)
  Receive Date: 20140103
  Receipt Date: 20140103
  Transmission Date: 20141002
  Serious: Yes (Hospitalization)
  Sender: FDA-Public Use
  Company Number: FR-BRISTOL-MYERS SQUIBB COMPANY-19956283

PATIENT
  Age: 86 Year
  Sex: Male

DRUGS (8)
  1. GLUCOPHAGE TABS 1000 MG [Suspect]
     Indication: TYPE 2 DIABETES MELLITUS
     Dosage: FILM-COATED TABLET
     Route: 048
     Dates: end: 20130819
  2. ULTRAVIST [Suspect]
     Dosage: 1DF-(370 MG OF IODINE/ML
     Route: 042
     Dates: start: 20130814, end: 20130816
  3. COVERSYL [Suspect]
     Dosage: (2.5 MG, FILM-COATED
     Route: 048
     Dates: end: 20130819
  4. PROFENID [Suspect]
     Dosage: SOL FOR INJ
     Route: 042
     Dates: start: 20130815, end: 20130818
  5. LASILIX [Suspect]
     Dosage: 40MG SCORED TAB
     Route: 048
     Dates: start: 201206
  6. AMARYL [Concomitant]
     Indication: TYPE 2 DIABETES MELLITUS
     Dosage: 4MG TAB
     Route: 048
     Dates: end: 20130819
  7. PLAVIX [Concomitant]
     Dosage: 75MG , FILM-COATED TAB
     Route: 048
     Dates: start: 201303
  8. KARDEGIC [Concomitant]
     Dosage: 75MG POWDER FOR ORAL SOL
     Route: 048

REACTIONS (1)
  - Renal failure acute [Recovered/Resolved]
